FAERS Safety Report 25302585 (Version 3)
Quarter: 2025Q2

REPORT INFORMATION
  Report Type: Report from Study
  Country: US (occurrence: US)
  Receive Date: 20250512
  Receipt Date: 20250522
  Transmission Date: 20250717
  Serious: No
  Sender: TRAVERE THERAPEUTICS
  Company Number: US-TRAVERE-2025TVT00572

PATIENT
  Age: 71 Year
  Sex: Male

DRUGS (16)
  1. FILSPARI [Suspect]
     Active Substance: SPARSENTAN
     Indication: IgA nephropathy
     Route: 048
     Dates: start: 20250331
  2. FILSPARI [Suspect]
     Active Substance: SPARSENTAN
     Route: 048
     Dates: start: 20250407
  3. CARVEDILOL [Concomitant]
     Active Substance: CARVEDILOL
  4. AMLODIPINE [Concomitant]
     Active Substance: AMLODIPINE BESYLATE
  5. ASPIRIN [Concomitant]
     Active Substance: ASPIRIN
  6. CIALIS [Concomitant]
     Active Substance: TADALAFIL
  7. VITAMIN D [Concomitant]
     Active Substance: VITAMIN D NOS
  8. FARXIGA [Concomitant]
     Active Substance: DAPAGLIFLOZIN PROPANEDIOL
  9. FUROSEMIDE [Concomitant]
     Active Substance: FUROSEMIDE
  10. OMEPRAZOLE [Concomitant]
     Active Substance: OMEPRAZOLE
  11. PLAVIX [Concomitant]
     Active Substance: CLOPIDOGREL BISULFATE
  12. PROAIR HFA [Concomitant]
     Active Substance: ALBUTEROL SULFATE
  13. ROSUVASTATIN CALCIUM [Concomitant]
     Active Substance: ROSUVASTATIN CALCIUM
  14. TESTOSTERONE [Concomitant]
     Active Substance: TESTOSTERONE
  15. Venlafaxine HCI ER [Concomitant]
  16. ZETIA [Concomitant]
     Active Substance: EZETIMIBE

REACTIONS (6)
  - Blood glucose increased [Unknown]
  - Blood creatinine increased [Unknown]
  - Glomerular filtration rate decreased [Unknown]
  - Urine albumin/creatinine ratio [Unknown]
  - Rash [Unknown]
  - Fatigue [Unknown]

NARRATIVE: CASE EVENT DATE: 20250416
